FAERS Safety Report 8875874 (Version 1)
Quarter: 2012Q4

REPORT INFORMATION
  Report Type: 
  Country: US (occurrence: US)
  Receive Date: 20121023
  Receipt Date: 20121023
  Transmission Date: 20130627
  Serious: No
  Sender: FDA-Public Use
  Company Number: US-ROCHE-GNE218876

PATIENT
  Sex: Female
  Weight: 145.28 kg

DRUGS (3)
  1. RAPTIVA [Suspect]
     Indication: PSORIASIS
     Dosage: 1.4 mL, 1/week
     Route: 058
     Dates: start: 200508
  2. RAPTIVA [Suspect]
     Indication: PUSTULAR PSORIASIS
  3. VITAMINS [Concomitant]
     Indication: PRODUCT USED FOR UNKNOWN INDICATION

REACTIONS (3)
  - Muscle spasms [Recovered/Resolved]
  - Pain [Unknown]
  - Hyperaesthesia [Unknown]
